FAERS Safety Report 10077026 (Version 3)
Quarter: 2014Q2

REPORT INFORMATION
  Report Type: Spontaneous
  Country: US (occurrence: US)
  Receive Date: 20140414
  Receipt Date: 20140505
  Transmission Date: 20141212
  Serious: Yes (Hospitalization)
  Sender: FDA-Public Use
  Company Number: US-JNJFOC-20140318478

PATIENT
  Age: 80 Year
  Sex: Female
  Weight: 48 kg

DRUGS (18)
  1. IMBRUVICA [Suspect]
     Indication: CHRONIC LYMPHOCYTIC LEUKAEMIA
     Route: 048
     Dates: start: 20140407
  2. IMBRUVICA [Suspect]
     Indication: CHRONIC LYMPHOCYTIC LEUKAEMIA
     Route: 048
     Dates: start: 20140313, end: 20140403
  3. IMBRUVICA [Suspect]
     Indication: CHRONIC LYMPHOCYTIC LEUKAEMIA
     Route: 048
     Dates: start: 20140224, end: 20140312
  4. ACYCLOVIR [Concomitant]
     Route: 048
  5. LEVOTHYROXINE [Concomitant]
     Indication: THYROID DISORDER
  6. BABY ASPIRIN [Concomitant]
  7. PRESERVISION AREDS SOFT GEL [Concomitant]
     Route: 048
  8. PRILOSEC [Concomitant]
  9. VITAMIN B12 [Concomitant]
     Dosage: 250 DAILY
  10. VITAMIN D [Concomitant]
  11. CILOSTAZOL [Concomitant]
  12. FLAXSEED OIL [Concomitant]
  13. GABAPENTIN [Concomitant]
     Dosage: 100 MG 3 TIMES A DAY AS NEEDED
  14. IRBESARTAN [Concomitant]
  15. MAGNESIUM GLUCONATE [Concomitant]
  16. PRAVASTATIN [Concomitant]
  17. OTHER OPHTHALMOLOGICALS [Concomitant]
  18. CALCIUM [Concomitant]
     Dosage: 600/400 TWICE DAILY

REACTIONS (6)
  - Pericardial effusion [Recovered/Resolved]
  - Pleural effusion [Recovering/Resolving]
  - Diarrhoea [Recovered/Resolved]
  - White blood cell count decreased [Not Recovered/Not Resolved]
  - Neutrophil count decreased [Not Recovered/Not Resolved]
  - Thrombocytopenia [Recovered/Resolved]
